FAERS Safety Report 6842626-1 (Version None)
Quarter: 2010Q3

REPORT INFORMATION
  Report Type: 
  Country: None (occurrence: None)
  Receive Date: 20100714
  Receipt Date: 20070809
  Transmission Date: 20110219
  Serious: No
  Sender: FDA-Public Use
  Company Number: US-PFIZER INC-2007065152

PATIENT
  Sex: Female

DRUGS (7)
  1. CHANTIX [Suspect]
     Indication: SMOKING CESSATION THERAPY
     Dates: start: 20070729
  2. ZYRTEC [Concomitant]
  3. LASIX [Concomitant]
  4. PRIMIDONE [Concomitant]
  5. NEURONTIN [Concomitant]
  6. SEROQUEL [Concomitant]
  7. ATIVAN [Concomitant]

REACTIONS (2)
  - CONSTIPATION [None]
  - MIGRAINE [None]
